FAERS Safety Report 6864234-9 (Version None)
Quarter: 2010Q3

REPORT INFORMATION
  Report Type: 
  Country: None (occurrence: None)
  Receive Date: 20100720
  Receipt Date: 20100712
  Transmission Date: 20110219
  Serious: No
  Sender: FDA-Public Use
  Company Number: 015450

PATIENT
  Sex: Female
  Weight: 54.4 kg

DRUGS (1)
  1. KEPPRA [Suspect]
     Indication: CONVULSION
     Dosage: (750 MG 7X/DAY, 4 TABLETS IN THE AM AND 3 TABLETS IN THE PM ORAL)
     Route: 048
     Dates: start: 20081201

REACTIONS (1)
  - GRAND MAL CONVULSION [None]
